FAERS Safety Report 6104523-9 (Version None)
Quarter: 2009Q1

REPORT INFORMATION
  Report Type: 
  Country: None (occurrence: None)
  Receive Date: 20090227
  Receipt Date: 20080402
  Transmission Date: 20090719
  Serious: Yes (Hospitalization)
  Sender: FDA-Public Use
  Company Number: RB-0690-2008

PATIENT
  Age: 26 Year
  Sex: Female

DRUGS (2)
  1. SUBUTEX [Suspect]
     Indication: DRUG DEPENDENCE
     Dosage: 16 MG  SUBLINGUAL
     Route: 060
     Dates: start: 20080401, end: 20080408
  2. SUBOXONE [Suspect]
     Indication: DRUG DEPENDENCE
     Dosage: 16 MG SUBLINGUAL
     Route: 060
     Dates: start: 20080220, end: 20080331

REACTIONS (1)
  - WITHDRAWAL SYNDROME [None]
